FAERS Safety Report 23897382 (Version 2)
Quarter: 2024Q2

REPORT INFORMATION
  Report Type: Report from Study
  Country: DE (occurrence: DE)
  Receive Date: 20240524
  Receipt Date: 20240603
  Transmission Date: 20240715
  Serious: Yes (Other)
  Sender: FDA-Public Use
  Company Number: DE-ALNYLAM PHARMACEUTICALS, INC.-ALN-2024-002899

PATIENT

DRUGS (4)
  1. GIVLAARI [Suspect]
     Active Substance: GIVOSIRAN SODIUM
     Indication: Product used for unknown indication
     Dosage: UNK
     Route: 065
  2. GIVLAARI [Suspect]
     Active Substance: GIVOSIRAN SODIUM
     Dosage: 155 MILLIGRAM FOUR WEEKLY
     Route: 065
     Dates: start: 20240517, end: 20240517
  3. ACETAZOLAMIDE [Suspect]
     Active Substance: ACETAZOLAMIDE
     Indication: Familial periodic paralysis
     Dosage: 125 MILLIGRAM 1-0-1
     Route: 048
     Dates: start: 20240513
  4. POTASSIUM [Concomitant]
     Active Substance: POTASSIUM
     Indication: Familial periodic paralysis
     Dosage: UNK, QD
     Route: 048

REACTIONS (6)
  - Paralysis [Recovered/Resolved]
  - Aphasia [Recovered/Resolved]
  - Asthenia [Not Recovered/Not Resolved]
  - Fatigue [Not Recovered/Not Resolved]
  - Nausea [Not Recovered/Not Resolved]
  - Somnolence [Recovered/Resolved]

NARRATIVE: CASE EVENT DATE: 20240517
